FAERS Safety Report 9086154 (Version 1)
Quarter: 2013Q1

REPORT INFORMATION
  Report Type: Spontaneous
  Country: US (occurrence: US)
  Receive Date: 20130218
  Receipt Date: 20130218
  Transmission Date: 20140127
  Serious: No
  Sender: FDA-Public Use
  Company Number: US-009507513-1302USA006208

PATIENT
  Sex: Male

DRUGS (4)
  1. CLARITIN [Suspect]
     Route: 048
  2. CETIRIZINE HYDROCHLORIDE [Concomitant]
  3. ZYRTEC [Concomitant]
  4. DIMETAPP (NEW FORMULA) [Concomitant]

REACTIONS (1)
  - Drug ineffective [Unknown]
